FAERS Safety Report 5976205-5 (Version None)
Quarter: 2008Q4

REPORT INFORMATION
  Report Type: 
  Country: None (occurrence: None)
  Receive Date: 20081202
  Receipt Date: 20081126
  Transmission Date: 20090506
  Serious: Yes (Life-Threatening, Hospitalization)
  Sender: FDA-Public Use
  Company Number: JP-ASTRAZENECA-2008SE05539

PATIENT
  Age: 70 Year
  Sex: Male

DRUGS (7)
  1. BLOPRESS [Suspect]
     Indication: HYPERTENSION
     Route: 048
     Dates: end: 20080529
  2. BIOFERMIN [Suspect]
     Route: 048
  3. GASMOTIN [Suspect]
     Route: 048
  4. GLIMICRON [Suspect]
     Route: 048
  5. AMLODIN [Suspect]
     Route: 048
  6. LENDORMIN [Suspect]
     Route: 048
  7. RABEPRAZOLE SODIUM [Concomitant]
     Route: 048

REACTIONS (1)
  - HEPATITIS ACUTE [None]
